FAERS Safety Report 14291870 (Version 4)
Quarter: 2018Q1

REPORT INFORMATION
  Report Type: Spontaneous
  Country: JP (occurrence: JP)
  Receive Date: 20171215
  Receipt Date: 20180305
  Transmission Date: 20180509
  Serious: Yes (Death, Hospitalization, Other)
  Sender: FDA-Public Use
  Company Number: JP-009507513-1712JPN001336J

PATIENT
  Age: 77 Year
  Sex: Male
  Weight: 61 kg

DRUGS (6)
  1. ADONA [Concomitant]
     Active Substance: CARBAZOCHROME SODIUM SULFONATE
     Indication: HAEMOPTYSIS
     Dosage: 50 MG, BID
     Route: 042
     Dates: start: 20171107, end: 20171116
  2. KEYTRUDA [Suspect]
     Active Substance: PEMBROLIZUMAB
     Indication: LUNG SQUAMOUS CELL CARCINOMA STAGE III
     Dosage: 200 MG, Q3W
     Route: 041
     Dates: start: 20171003, end: 20171115
  3. TRANSAMIN [Concomitant]
     Active Substance: TRANEXAMIC ACID
     Indication: HAEMOPTYSIS
     Dosage: 500 MG, TID
     Route: 048
     Dates: start: 20171117, end: 20171203
  4. TRANSAMIN [Concomitant]
     Active Substance: TRANEXAMIC ACID
     Indication: HAEMOPTYSIS
     Dosage: 10 ML, BID
     Route: 042
     Dates: start: 20171107, end: 20171116
  5. PREDONINE [Concomitant]
     Active Substance: PREDNISOLONE
     Indication: RADIATION PNEUMONITIS
     Dosage: 5 MG, UNK
     Route: 048
  6. ADONA [Concomitant]
     Active Substance: CARBAZOCHROME SODIUM SULFONATE
     Indication: HAEMOPTYSIS
     Dosage: 30 MG, TID
     Route: 048
     Dates: start: 20171117, end: 20171203

REACTIONS (1)
  - Interstitial lung disease [Fatal]

NARRATIVE: CASE EVENT DATE: 20171126
